FAERS Safety Report 5761215-3 (Version None)
Quarter: 2008Q2

REPORT INFORMATION
  Report Type: 
  Country: None (occurrence: None)
  Receive Date: 20080606
  Receipt Date: 20080526
  Transmission Date: 20081010
  Serious: Yes (Other)
  Sender: FDA-Public Use
  Company Number: PHHY2008KZ08512

PATIENT
  Age: 67 Year
  Sex: Female

DRUGS (2)
  1. MIACALCIN [Suspect]
     Indication: OSTEOPOROSIS
     Dosage: 200 U/DAY
     Route: 045
     Dates: start: 20080201, end: 20080523
  2. CALCIUM [Concomitant]

REACTIONS (1)
  - ANGIOEDEMA [None]
